FAERS Safety Report 7893775-0 (Version None)
Quarter: 2011Q4

REPORT INFORMATION
  Report Type: 
  Country: None (occurrence: None)
  Receive Date: 20111104
  Receipt Date: 20111102
  Transmission Date: 20120403
  Serious: No
  Sender: FDA-Public Use
  Company Number: US-TEVA-307672USA

PATIENT
  Sex: Male
  Weight: 99.426 kg

DRUGS (1)
  1. PROAIR HFA [Suspect]
     Indication: ASTHMA
     Dosage: 180 MICROGRAM;

REACTIONS (2)
  - CHEST PAIN [None]
  - THROAT IRRITATION [None]
